FAERS Safety Report 20016674 (Version 1)
Quarter: 2021Q4

REPORT INFORMATION
  Report Type: Spontaneous
  Country: US (occurrence: None)
  Receive Date: 20211104
  Receipt Date: 20211104
  Transmission Date: 20220303
  Serious: Yes (Other)
  Sender: FDA-Public Use
  Company Number: None

PATIENT
  Age: 73 Year

DRUGS (5)
  1. HIZENTRA [Suspect]
     Active Substance: HUMAN IMMUNOGLOBULIN G
     Indication: Immunodeficiency common variable
     Dosage: OTHER FREQUENCY : WEEKLY;?
     Route: 058
     Dates: start: 20160613
  2. Aspirin 325mg PO BID [Concomitant]
  3. Metoprolol tartrate 50mg PO daily [Concomitant]
  4. Pepcid AC 10mg PO BID [Concomitant]
  5. Tessalon perles 100mg PO every 8 hours [Concomitant]

REACTIONS (4)
  - Infusion site pruritus [None]
  - Infusion site warmth [None]
  - Infusion site discolouration [None]
  - Recalled product administered [None]

NARRATIVE: CASE EVENT DATE: 20211028
